FAERS Safety Report 8009927-5 (Version None)
Quarter: 2011Q4

REPORT INFORMATION
  Report Type: 
  Country: None (occurrence: None)
  Receive Date: 20111228
  Receipt Date: 20111216
  Transmission Date: 20120403
  Serious: Yes (Hospitalization, Other)
  Sender: FDA-Public Use
  Company Number: PHHY2011BR109965

PATIENT
  Age: 73 Year
  Sex: Male

DRUGS (10)
  1. ATORVASTATIN [Concomitant]
     Dosage: 1 TABLET AT NIGHT
  2. LASIX [Concomitant]
     Dosage: 1 TABLETS DAILY
  3. METFORMIN HCL [Concomitant]
     Indication: DIABETES MELLITUS
     Dosage: 1 TABLET AT NIGHT
  4. DIOVAN [Suspect]
     Indication: HYPERTENSION
     Dosage: 160 MG, UNK
  5. AMLODIPINE [Concomitant]
     Dosage: 10 MG, QD
  6. DIOVAN [Suspect]
     Dosage: 320 MG, UNK
     Dates: start: 20111205
  7. CARVEDILOL [Concomitant]
     Dosage: 12.5 MG EACH 12 HOUR
  8. ALDIFITOFE [Concomitant]
     Indication: BLOOD GLUCOSE
     Dosage: 25 MG, DAILY
  9. CLOPIDOGREL [Concomitant]
     Dosage: 75 MG, DAILY
  10. DIAMICRON [Concomitant]
     Indication: DIABETES MELLITUS
     Dosage: 60 MG, QD

REACTIONS (3)
  - BLOOD PRESSURE FLUCTUATION [None]
  - THROMBOSIS [None]
  - PAIN IN EXTREMITY [None]
